FAERS Safety Report 9926020 (Version 2)
Quarter: 2014Q2

REPORT INFORMATION
  Report Type: Spontaneous
  Country: US (occurrence: US)
  Receive Date: 20140226
  Receipt Date: 20140410
  Transmission Date: 20141212
  Serious: No
  Sender: FDA-Public Use
  Company Number: US-009507513-1402USA010559

PATIENT
  Age: 23 Year
  Sex: Female
  Weight: 87.75 kg

DRUGS (2)
  1. NEXPLANON [Suspect]
     Indication: CONTRACEPTION
     Dosage: SINGLE ROD
     Route: 059
     Dates: start: 201205
  2. LEXAPRO [Concomitant]

REACTIONS (2)
  - Haemorrhagic cyst [Unknown]
  - Adnexa uteri cyst [Unknown]
